FAERS Safety Report 20066005 (Version 5)
Quarter: 2024Q4

REPORT INFORMATION
  Report Type: Spontaneous
  Country: US (occurrence: US)
  Receive Date: 20211114
  Receipt Date: 20241126
  Transmission Date: 20250115
  Serious: Yes (Other)
  Sender: JOHNSON AND JOHNSON
  Company Number: US-JNJFOC-20211114330

PATIENT
  Age: 34 Year
  Sex: Female

DRUGS (12)
  1. ELMIRON [Suspect]
     Active Substance: PENTOSAN POLYSULFATE SODIUM
     Indication: Cystitis interstitial
     Dosage: IN VARYING DOSES OF 100 MG AND 200 MG, IN VARYING FREQUENCIES OF TWICE DAILY AND ONCE DAILY,
     Route: 048
     Dates: start: 200012, end: 2019
  2. GABAPENTIN [Concomitant]
     Active Substance: GABAPENTIN
     Indication: Fibromyalgia
     Route: 065
     Dates: start: 1997
  3. OXYCODONE [Concomitant]
     Active Substance: OXYCODONE
     Indication: Paraplegia
     Route: 065
     Dates: start: 2002
  4. BACLOFEN [Concomitant]
     Active Substance: BACLOFEN
     Indication: Paraplegia
     Route: 065
     Dates: start: 2010
  5. METOPROLOL [Concomitant]
     Active Substance: METOPROLOL
     Indication: Supraventricular tachycardia
     Route: 065
     Dates: start: 2002
  6. NORVASC [Concomitant]
     Active Substance: AMLODIPINE BESYLATE
     Indication: Hypertension
     Route: 065
     Dates: start: 202108
  7. CRANBERRY [Concomitant]
     Active Substance: CRANBERRY
     Indication: Urinary tract infection
     Route: 065
     Dates: start: 2020
  8. SODIUM BICARBONATE [Concomitant]
     Active Substance: SODIUM BICARBONATE
     Indication: Gastrointestinal disorder
     Route: 065
     Dates: start: 2014
  9. POTASSIUM [Concomitant]
     Active Substance: POTASSIUM
     Indication: Nutritional supplementation
     Route: 065
     Dates: start: 2020
  10. ZOLOFT [Concomitant]
     Active Substance: SERTRALINE HYDROCHLORIDE
     Indication: Depression
     Route: 065
     Dates: start: 2002
  11. ZOLOFT [Concomitant]
     Active Substance: SERTRALINE HYDROCHLORIDE
     Indication: Anxiety
  12. ASPIRIN [Concomitant]
     Active Substance: ASPIRIN
     Indication: Thrombosis prophylaxis
     Route: 065
     Dates: start: 2020

REACTIONS (3)
  - Maculopathy [Unknown]
  - Retinal pigmentation [Unknown]
  - Off label use [Unknown]

NARRATIVE: CASE EVENT DATE: 20001201
